FAERS Safety Report 11872452 (Version 2)
Quarter: 2016Q1

REPORT INFORMATION
  Report Type: Spontaneous
  Country: DE (occurrence: DE)
  Receive Date: 20151228
  Receipt Date: 20160315
  Transmission Date: 20160526
  Serious: Yes (Other)
  Sender: FDA-Public Use
  Company Number: DE-TEVA-621629GER

PATIENT
  Age: 9 Decade

DRUGS (1)
  1. SALBUTAMOL-RATIOPHARM N DOSIERAEROSOL [Suspect]
     Active Substance: ALBUTEROL
     Route: 055

REACTIONS (1)
  - Foreign body aspiration [Recovered/Resolved]
